FAERS Safety Report 21357862 (Version 2)
Quarter: 2023Q1

REPORT INFORMATION
  Report Type: Other
  Country: CZ (occurrence: CZ)
  Receive Date: 20220921
  Receipt Date: 20230217
  Transmission Date: 20230418
  Serious: Yes (Hospitalization)
  Sender: FDA-Public Use
  Company Number: CZ-CELLTRION INC.-2022CZ015053

PATIENT

DRUGS (7)
  1. RITUXIMAB [Suspect]
     Active Substance: RITUXIMAB
     Indication: Follicular lymphoma
     Dosage: 787.5 MG (DAYS 1, 8, 15, 22 OF CYCLE 1 THEN DAY OF CYCLES 2 TO 5)
     Route: 042
     Dates: start: 20220802, end: 20220809
  2. RITUXIMAB [Suspect]
     Active Substance: RITUXIMAB
     Indication: Marginal zone lymphoma
     Dosage: 375 MG/M2
     Route: 042
     Dates: start: 20221025
  3. LENALIDOMIDE [Suspect]
     Active Substance: LENALIDOMIDE
     Indication: Marginal zone lymphoma
     Dosage: 20 MG, QD (DAYS 1 TO 21 CYCLES OF  1 TO 12)
     Route: 048
     Dates: start: 20220802
  4. LENALIDOMIDE [Suspect]
     Active Substance: LENALIDOMIDE
     Indication: Follicular lymphoma
     Dosage: 20 MG, QD DAYS 1 TO 21 CYCLES OF  1 TO 12)
     Route: 048
     Dates: start: 20220808
  5. LENALIDOMIDE [Suspect]
     Active Substance: LENALIDOMIDE
     Dosage: 20 MG, QD DAYS 1 TO 21 CYCLES OF 1 TO 12)
     Route: 048
     Dates: start: 20220808
  6. LENALIDOMIDE [Suspect]
     Active Substance: LENALIDOMIDE
     Dosage: 20 MG, QD (DAYS 1 TO 21 CYCLES OF 1 TO 12)
     Route: 048
     Dates: start: 20220802, end: 20220807
  7. LENALIDOMIDE [Suspect]
     Active Substance: LENALIDOMIDE
     Dosage: 15 MG
     Route: 048
     Dates: start: 20221025

REACTIONS (2)
  - Infection [Not Recovered/Not Resolved]
  - Off label use [Unknown]

NARRATIVE: CASE EVENT DATE: 20220809
